FAERS Safety Report 6174150-6 (Version None)
Quarter: 2009Q2

REPORT INFORMATION
  Report Type: 
  Country: None (occurrence: None)
  Receive Date: 20090430
  Receipt Date: 20080417
  Transmission Date: 20091009
  Serious: No
  Sender: FDA-Public Use
  Company Number: US-ASTRAZENECA-2008UW07961

PATIENT
  Age: 65 Year
  Sex: Female

DRUGS (6)
  1. NEXIUM [Suspect]
     Indication: GASTROOESOPHAGEAL REFLUX DISEASE
  2. POTASSIUM CHLORIDE [Concomitant]
  3. VERAPAMIL [Concomitant]
  4. INDAPAMIDE [Concomitant]
  5. LISINOPRIL [Concomitant]
  6. LIPITOR [Concomitant]

REACTIONS (2)
  - ACCIDENTAL OVERDOSE [None]
  - DIZZINESS [None]
